FAERS Safety Report 9678866 (Version 1)
Quarter: 2013Q4

REPORT INFORMATION
  Report Type: Spontaneous
  Country: US (occurrence: None)
  Receive Date: 20131107
  Receipt Date: 20131107
  Transmission Date: 20140711
  Serious: Yes (Hospitalization)
  Sender: FDA-Public Use
  Company Number: 13AE024

PATIENT
  Age: 13 Year
  Sex: Female

DRUGS (2)
  1. UP+UP ACETAMINOPHEN [Suspect]
     Indication: ABDOMINAL PAIN UPPER
     Dosage: 3 BY MOUTH
     Route: 048
     Dates: start: 20131013
  2. UP+UP ACETAMINOPHEN [Suspect]
     Indication: MUSCLE SPASMS
     Dosage: 3 BY MOUTH
     Route: 048
     Dates: start: 20131013

REACTIONS (1)
  - Hypersensitivity [None]
